FAERS Safety Report 4941841-1 (Version None)
Quarter: 2006Q1

REPORT INFORMATION
  Report Type: 
  Country: None (occurrence: None)
  Receive Date: 20060307
  Receipt Date: 20060222
  Transmission Date: 20060701
  Serious: Yes (Hospitalization, Other)
  Sender: FDA-Public Use
  Company Number: HQWYE947923FEB06

PATIENT
  Age: 80 Year
  Sex: Female
  Weight: 74.91 kg

DRUGS (9)
  1. EFFEXOR XR [Suspect]
     Indication: DEPRESSION
     Dosage: SEE IMAGE
     Route: 048
     Dates: end: 20040101
  2. EFFEXOR XR [Suspect]
     Indication: DEPRESSION
     Dosage: SEE IMAGE
     Route: 048
     Dates: start: 20040101, end: 20060216
  3. EFFEXOR XR [Suspect]
     Indication: DEPRESSION
     Dosage: SEE IMAGE
     Route: 048
     Dates: start: 20060217, end: 20060218
  4. EFFEXOR XR [Suspect]
     Indication: DEPRESSION
     Dosage: SEE IMAGE
     Route: 048
     Dates: start: 20060219
  5. TRILEPTAL [Suspect]
     Indication: CONVULSION
     Dates: end: 20060101
  6. COUMADIN [Concomitant]
  7. AMIODARONE HCL [Concomitant]
  8. CARDIZEM [Concomitant]
  9. TRAZODONE HCL [Concomitant]

REACTIONS (8)
  - BRAIN NEOPLASM [None]
  - CARDIAC FAILURE CONGESTIVE [None]
  - DRUG EFFECT DECREASED [None]
  - DRUG INEFFECTIVE [None]
  - ELECTROENCEPHALOGRAM ABNORMAL [None]
  - HYPOTHYROIDISM [None]
  - INSOMNIA [None]
  - PARTIAL SEIZURES [None]
